FAERS Safety Report 24210868 (Version 1)
Quarter: 2024Q3

REPORT INFORMATION
  Report Type: Spontaneous
  Country: US (occurrence: None)
  Receive Date: 20240814
  Receipt Date: 20240814
  Transmission Date: 20241017
  Serious: Yes (Hospitalization)
  Sender: Public
  Company Number: None

PATIENT
  Sex: Male
  Weight: 125.5 kg

DRUGS (3)
  1. CARBOPLATIN [Suspect]
     Active Substance: CARBOPLATIN
  2. ERBITUX [Concomitant]
     Active Substance: CETUXIMAB
  3. TAXOTERE [Concomitant]
     Active Substance: DOCETAXEL

REACTIONS (9)
  - Enterocolitis [None]
  - Oesophagitis [None]
  - Gastrooesophageal reflux disease [None]
  - Sepsis [None]
  - Hypotension [None]
  - Tachycardia [None]
  - Oesophageal motility disorder [None]
  - Platelet count decreased [None]
  - Blood lactic acid increased [None]

NARRATIVE: CASE EVENT DATE: 20240212
